FAERS Safety Report 4568185-4 (Version None)
Quarter: 2005Q1

REPORT INFORMATION
  Report Type: 
  Country: None (occurrence: None)
  Receive Date: 20050128
  Receipt Date: 20050113
  Transmission Date: 20050727
  Serious: Yes (Hospitalization)
  Sender: FDA-Public Use
  Company Number: 9783

PATIENT
  Age: 33 Year
  Sex: Male

DRUGS (6)
  1. PAMIDRONATE DISODIUM [Suspect]
     Dosage: 45 MG QD, IV
     Route: 042
     Dates: start: 20041207, end: 20041208
  2. LACTULOSE [Concomitant]
  3. AMITRIPTYLINE [Concomitant]
  4. CLONAZEPAM [Concomitant]
  5. ACETAMINOPHEN [Concomitant]
  6. SKENAN [Concomitant]

REACTIONS (3)
  - ABDOMINAL PAIN UPPER [None]
  - INFLUENZA LIKE ILLNESS [None]
  - PYREXIA [None]
